FAERS Safety Report 8004599-8 (Version None)
Quarter: 2011Q4

REPORT INFORMATION
  Report Type: 
  Country: None (occurrence: None)
  Receive Date: 20111223
  Receipt Date: 20111213
  Transmission Date: 20120403
  Serious: Yes (Other)
  Sender: FDA-Public Use
  Company Number: US-JNJFOC-20111108171

PATIENT
  Sex: Female
  Weight: 52.16 kg

DRUGS (5)
  1. SYNTHROID [Concomitant]
     Indication: HYPOTHYROIDISM
  2. PREDNISONE TAB [Concomitant]
  3. CHOLESTEROL LOWERING DRUG, NOS [Concomitant]
     Indication: BLOOD CHOLESTEROL INCREASED
     Dates: start: 20050101
  4. REMICADE [Suspect]
     Indication: CROHN'S DISEASE
     Route: 042
     Dates: start: 20100101, end: 20110701
  5. REMICADE [Suspect]
     Route: 042
     Dates: start: 20100101, end: 20110101

REACTIONS (2)
  - URTICARIA [None]
  - ARTHRITIS [None]
